FAERS Safety Report 9757537 (Version 1)
Quarter: 2013Q4

REPORT INFORMATION
  Report Type: Report from Study
  Country: AR (occurrence: AR)
  Receive Date: 20131216
  Receipt Date: 20131216
  Transmission Date: 20140711
  Serious: Yes (Other)
  Sender: FDA-Public Use
  Company Number: AR-ROCHE-1319707

PATIENT
  Age: 61 Year
  Sex: Male

DRUGS (3)
  1. RANIBIZUMAB [Suspect]
     Indication: MACULOPATHY
     Route: 050
     Dates: start: 201210
  2. BEVACIZUMAB [Suspect]
     Indication: MACULOPATHY
     Route: 065
     Dates: start: 201210
  3. VALSARTAN [Concomitant]
     Indication: HYPERTENSION

REACTIONS (2)
  - Glaucoma [Recovering/Resolving]
  - Vision blurred [Not Recovered/Not Resolved]
